FAERS Safety Report 4714872-4 (Version None)
Quarter: 2005Q3

REPORT INFORMATION
  Report Type: 
  Country: None (occurrence: None)
  Receive Date: 20050713
  Receipt Date: 20050705
  Transmission Date: 20060218
  Serious: Yes (Hospitalization)
  Sender: FDA-Public Use
  Company Number: TPG2005A00213

PATIENT
  Age: 72 Year
  Sex: Female

DRUGS (6)
  1. ACTOS [Suspect]
     Indication: DIABETES MELLITUS NON-INSULIN-DEPENDENT
     Dosage: 30 MG (30 MG, 1 IN 1 D) PER ORAL
     Route: 048
     Dates: start: 20020606, end: 20050408
  2. ... [Suspect]
  3. RAMIPRIL COMP (RAMIPRIL) [Concomitant]
  4. COMP (HYDROCHLOROTHIAZIDE) [Concomitant]
  5. ALLOPURINOL [Concomitant]
  6. METFORMIN HCL [Concomitant]

REACTIONS (11)
  - ABDOMINAL PAIN UPPER [None]
  - ANURIA [None]
  - DEHYDRATION [None]
  - DIABETES MELLITUS INADEQUATE CONTROL [None]
  - GOUT [None]
  - NAUSEA [None]
  - OBESITY [None]
  - POLYARTHRITIS [None]
  - RENAL FAILURE ACUTE [None]
  - SCOLIOSIS [None]
  - SPINAL OSTEOARTHRITIS [None]
